FAERS Safety Report 8681760 (Version 2)
Quarter: 2012Q4

REPORT INFORMATION
  Report Type: 
  Country: US (occurrence: US)
  Receive Date: 20120725
  Receipt Date: 20121004
  Transmission Date: 20130627
  Serious: Yes (Other)
  Sender: FDA-Public Use
  Company Number: US-PFIZER INC-2012175715

PATIENT
  Age: 48 Year
  Sex: Female
  Weight: 46.26 kg

DRUGS (7)
  1. LYRICA [Suspect]
     Indication: PAIN
     Dosage: UNK, 2x/day
     Route: 048
     Dates: end: 2012
  2. LYRICA [Suspect]
     Dosage: UNK, 1x/day
     Route: 048
     Dates: start: 2012, end: 2012
  3. VALIUM [Suspect]
     Indication: NEUROPATHY PERIPHERAL
     Dosage: UNK
  4. VALIUM [Suspect]
     Indication: MUSCLE RELAXANT THERAPY
  5. VALIUM [Suspect]
     Indication: PAIN
  6. VALIUM [Suspect]
     Indication: ANXIETY
  7. VALIUM [Suspect]
     Indication: SLEEP DISORDER

REACTIONS (9)
  - Convulsion [Unknown]
  - Intervertebral disc degeneration [Unknown]
  - Head injury [Unknown]
  - Nodule [Unknown]
  - Gait disturbance [Unknown]
  - Speech disorder [Unknown]
  - Memory impairment [Unknown]
  - Weight increased [Unknown]
  - Drug ineffective [Unknown]
